FAERS Safety Report 24855637 (Version 1)
Quarter: 2025Q1

REPORT INFORMATION
  Report Type: Spontaneous
  Country: PL (occurrence: PL)
  Receive Date: 20250117
  Receipt Date: 20250117
  Transmission Date: 20250409
  Serious: Yes (Hospitalization, Other)
  Sender: TEVA
  Company Number: PL-TEVA-VS-3285252

PATIENT
  Age: 36 Year
  Sex: Female

DRUGS (18)
  1. ESCITALOPRAM [Suspect]
     Active Substance: ESCITALOPRAM OXALATE
     Indication: Insomnia
     Dosage: AT NIGHT
     Route: 065
  2. METAMIZOLE [Suspect]
     Active Substance: METAMIZOLE
     Indication: Toothache
     Route: 065
  3. DICLOFENAC [Suspect]
     Active Substance: DICLOFENAC
     Indication: Toothache
     Route: 065
  4. DICLOFENAC [Suspect]
     Active Substance: DICLOFENAC
     Indication: Toothache
     Route: 061
  5. OXYCODONE [Suspect]
     Active Substance: OXYCODONE
     Indication: Toothache
     Route: 065
  6. IBUPROFEN [Suspect]
     Active Substance: IBUPROFEN
     Indication: Toothache
     Route: 065
  7. ACETAMINOPHEN [Suspect]
     Active Substance: ACETAMINOPHEN
     Indication: Toothache
     Route: 065
  8. AMOXICILLIN [Suspect]
     Active Substance: AMOXICILLIN
     Indication: Toothache
     Route: 065
  9. DOXYLAMINE [Suspect]
     Active Substance: DOXYLAMINE
     Indication: Depression
     Dosage: AT NIGHT
     Route: 065
  10. BUPRENORPHINE [Suspect]
     Active Substance: BUPRENORPHINE
     Indication: Toothache
     Route: 050
  11. DIAZEPAM [Suspect]
     Active Substance: DIAZEPAM
     Indication: Toothache
     Route: 065
  12. CLINDAMYCIN [Suspect]
     Active Substance: CLINDAMYCIN
     Indication: Toothache
     Route: 065
  13. ACETAMINOPHEN\CODEINE PHOSPHATE [Suspect]
     Active Substance: ACETAMINOPHEN\CODEINE PHOSPHATE
     Indication: Toothache
     Route: 065
  14. BENZYDAMINE [Suspect]
     Active Substance: BENZYDAMINE
     Indication: Toothache
     Route: 061
  15. FLURBIPROFEN [Suspect]
     Active Substance: FLURBIPROFEN
     Indication: Toothache
     Route: 061
  16. CHLORHEXIDINE [Suspect]
     Active Substance: CHLORHEXIDINE
     Indication: Toothache
     Route: 061
  17. LIDOCAINE HYDROCHLORIDE [Suspect]
     Active Substance: LIDOCAINE HYDROCHLORIDE
     Indication: Toothache
     Route: 061
  18. MORPHINE [Suspect]
     Active Substance: MORPHINE
     Indication: Toothache
     Route: 065

REACTIONS (6)
  - Central pain syndrome [Recovering/Resolving]
  - Drug ineffective [Unknown]
  - Somnolence [Unknown]
  - Toothache [Recovering/Resolving]
  - Dry mouth [Unknown]
  - Hyperaesthesia [Recovering/Resolving]
